FAERS Safety Report 4548191-6 (Version None)
Quarter: 2005Q1

REPORT INFORMATION
  Report Type: 
  Country: None (occurrence: None)
  Receive Date: 20050105
  Receipt Date: 20050105
  Transmission Date: 20050727
  Serious: Yes (Death, Life-Threatening, Hospitalization)
  Sender: FDA-Public Use
  Company Number: None

PATIENT
  Age: 80 Year
  Sex: Male
  Weight: 59 kg

DRUGS (2)
  1. IRINOTECAN [Suspect]
  2. CISPLATIN [Concomitant]

REACTIONS (7)
  - ANAEMIA [None]
  - DIARRHOEA [None]
  - ELECTROLYTE IMBALANCE [None]
  - HYPOVOLAEMIA [None]
  - NEUTROPENIA [None]
  - RECTAL HAEMORRHAGE [None]
  - THROMBOCYTOPENIA [None]
